FAERS Safety Report 25888277 (Version 1)
Quarter: 2025Q4

REPORT INFORMATION
  Report Type: Spontaneous
  Country: EU (occurrence: EU)
  Receive Date: 20251007
  Receipt Date: 20251007
  Transmission Date: 20260117
  Serious: Yes (Other)
  Sender: SANDOZ
  Company Number: EU-002147023-NVSC2019PL015256

PATIENT
  Age: 1 Year
  Sex: Male

DRUGS (17)
  1. CYCLOPHOSPHAMIDE [Suspect]
     Active Substance: CYCLOPHOSPHAMIDE
     Indication: Stem cell transplant
     Dosage: 14.5 MG/KG, ON DAYS -6,-5
     Route: 065
  2. CYCLOPHOSPHAMIDE [Suspect]
     Active Substance: CYCLOPHOSPHAMIDE
     Indication: Immunosuppression
     Dosage: 50 MG/KG, ON DAY +3, +4
     Route: 065
  3. CYCLOPHOSPHAMIDE [Suspect]
     Active Substance: CYCLOPHOSPHAMIDE
     Indication: Bone marrow conditioning regimen
  4. CYCLOPHOSPHAMIDE [Suspect]
     Active Substance: CYCLOPHOSPHAMIDE
     Indication: Familial haemophagocytic lymphohistiocytosis
  5. CYCLOPHOSPHAMIDE [Suspect]
     Active Substance: CYCLOPHOSPHAMIDE
     Indication: Prophylaxis against graft versus host disease
  6. CYCLOSPORINE [Suspect]
     Active Substance: CYCLOSPORINE
     Indication: Stem cell transplant
     Dosage: UNK (FROM THE 5TH DAY AFTER HAPLOSCT)
     Route: 065
  7. CYCLOSPORINE [Suspect]
     Active Substance: CYCLOSPORINE
     Indication: Immunosuppression
  8. CYCLOSPORINE [Suspect]
     Active Substance: CYCLOSPORINE
     Indication: Prophylaxis against graft versus host disease
  9. FLUDARABINE PHOSPHATE [Suspect]
     Active Substance: FLUDARABINE PHOSPHATE
     Indication: Bone marrow conditioning regimen
     Dosage: 30 MG/M2 ON DAYS -6 TO -2
     Route: 065
  10. FLUDARABINE PHOSPHATE [Suspect]
     Active Substance: FLUDARABINE PHOSPHATE
     Indication: Familial haemophagocytic lymphohistiocytosis
  11. MYCOPHENOLATE MOFETIL [Suspect]
     Active Substance: MYCOPHENOLATE MOFETIL
     Indication: Stem cell transplant
     Dosage: UNK (ON DAY +5 THEREAFTER)
     Route: 065
  12. MYCOPHENOLATE MOFETIL [Suspect]
     Active Substance: MYCOPHENOLATE MOFETIL
     Indication: Immunosuppression
  13. MYCOPHENOLATE MOFETIL [Suspect]
     Active Substance: MYCOPHENOLATE MOFETIL
     Indication: Prophylaxis against graft versus host disease
  14. TREOSULFAN [Suspect]
     Active Substance: TREOSULFAN
     Indication: Familial haemophagocytic lymphohistiocytosis
     Dosage: 10 G/M2 (GRAM PER SQUARE METRE), ON  DAYS -6,-5
     Route: 065
  15. TREOSULFAN [Suspect]
     Active Substance: TREOSULFAN
     Indication: Bone marrow conditioning regimen
  16. SULFAMETHOXAZOLE\TRIMETHOPRIM [Suspect]
     Active Substance: SULFAMETHOXAZOLE\TRIMETHOPRIM
     Indication: Antifungal prophylaxis
     Dosage: UNK
     Route: 065
  17. GRANULOCYTE COLONY-STIMULATING FACTOR NOS [Concomitant]
     Active Substance: GRANULOCYTE COLONY-STIMULATING FACTOR NOS
     Indication: Product used for unknown indication
     Dosage: 5 UG/KG (MICROGRAM PER KILOGRAM), QD
     Route: 065

REACTIONS (7)
  - Graft versus host disease in skin [Recovering/Resolving]
  - Graft versus host disease in liver [Recovering/Resolving]
  - Febrile neutropenia [Recovered/Resolved]
  - Cytomegalovirus infection [Recovered/Resolved]
  - Splenic candidiasis [Recovered/Resolved]
  - Mucosal inflammation [Unknown]
  - Product use in unapproved indication [Unknown]
